FAERS Safety Report 25135515 (Version 2)
Quarter: 2025Q2

REPORT INFORMATION
  Report Type: Spontaneous
  Country: US (occurrence: US)
  Receive Date: 20250328
  Receipt Date: 20250408
  Transmission Date: 20250716
  Serious: No
  Sender: ALNYLAM PHARMACEUTICALS
  Company Number: US-ALNYLAM PHARMACEUTICALS, INC.-ALN-2025-002066

PATIENT

DRUGS (2)
  1. AMVUTTRA [Suspect]
     Active Substance: VUTRISIRAN
     Indication: Hereditary neuropathic amyloidosis
     Route: 065
     Dates: start: 202501, end: 202501
  2. TAFAMIDIS [Concomitant]
     Active Substance: TAFAMIDIS
     Indication: Hereditary neuropathic amyloidosis
     Route: 065
     Dates: start: 202409

REACTIONS (4)
  - Muscle tightness [Unknown]
  - Muscle rigidity [Unknown]
  - Muscle spasms [Unknown]
  - Muscle disorder [Unknown]
